FAERS Safety Report 23858844 (Version 1)
Quarter: 2024Q2

REPORT INFORMATION
  Report Type: Other
  Country: RO (occurrence: RO)
  Receive Date: 20240515
  Receipt Date: 20240515
  Transmission Date: 20240716
  Serious: Yes (Congenital Anomaly, Other)
  Sender: FDA-Public Use
  Company Number: RO-Merck Healthcare KGaA-2024024894

PATIENT
  Sex: Male

DRUGS (4)
  1. METFORMIN [Suspect]
     Active Substance: METFORMIN HYDROCHLORIDE
     Indication: Type 2 diabetes mellitus
     Dosage: PRODUCT TAKEN BY PATIENT^S MOTHER
     Route: 064
  2. NIFEDIPINE [Suspect]
     Active Substance: NIFEDIPINE
     Indication: Hypertension
     Dosage: PRODUCT TAKEN BY PATIENT^S MOTHER
     Route: 064
  3. FOLIC ACID [Suspect]
     Active Substance: FOLIC ACID
     Indication: Product used for unknown indication
     Dosage: PRODUCT TAKEN BY PATIENT^S MOTHER
     Route: 064
  4. INSULIN NOS [Suspect]
     Active Substance: INSULIN NOS
     Indication: Type 2 diabetes mellitus
     Dosage: PRODUCT TAKEN BY A PATIENT^S MOTHER
     Route: 064

REACTIONS (3)
  - Holoprosencephaly [Unknown]
  - Foetal growth restriction [Unknown]
  - Foetal exposure during pregnancy [Recovered/Resolved]
